FAERS Safety Report 5078682-3 (Version None)
Quarter: 2006Q3

REPORT INFORMATION
  Report Type: 
  Country: None (occurrence: None)
  Receive Date: 20060809
  Receipt Date: 20060809
  Transmission Date: 20061208
  Serious: No
  Sender: FDA-Public Use
  Company Number: None

PATIENT
  Age: 56 Year
  Sex: Female
  Weight: 47 kg

DRUGS (20)
  1. EMSAM [Suspect]
     Indication: DEPRESSION
     Dosage: 6MG/24 HOURS 1 PATCH DAILY TRANSDERMAL
     Route: 062
     Dates: start: 20060602, end: 20060724
  2. AMANTADINE HCL [Concomitant]
  3. AMLODIPINE [Concomitant]
  4. ATORVASTATIN CALCIUM [Concomitant]
  5. BISACODYL [Concomitant]
  6. CALCITONIN-SALMON [Concomitant]
  7. CHEWABLE ANTACID [Concomitant]
  8. DOCUSATE CALCIUM [Concomitant]
  9. DONEPEZIL HCL [Concomitant]
  10. LORAZEPAM [Concomitant]
  11. MEGESTROL [Concomitant]
  12. MULTI-VITAMIN [Concomitant]
  13. OLANZAPINE ZYDIS [Concomitant]
  14. ACETAMINOPHEN [Concomitant]
  15. BENZTROPINE MESYLATE [Concomitant]
  16. HALOPERIDOL [Concomitant]
  17. HYDROXYZINE [Concomitant]
  18. HYDROCORTISONE RECTAL CREAM [Concomitant]
  19. LOREZEPAM [Concomitant]
  20. OLANZAPINE [Concomitant]

REACTIONS (1)
  - RASH MACULO-PAPULAR [None]
